FAERS Safety Report 6239206-8 (Version None)
Quarter: 2009Q2

REPORT INFORMATION
  Report Type: 
  Country: None (occurrence: None)
  Receive Date: 20090622
  Receipt Date: 20090612
  Transmission Date: 20091009
  Serious: Yes (Life-Threatening, Hospitalization, Disabling)
  Sender: FDA-Public Use
  Company Number: US-PFIZER INC-2009205347

PATIENT
  Weight: 59.864 kg

DRUGS (2)
  1. CHANTIX [Suspect]
     Indication: SMOKING CESSATION THERAPY
     Dosage: PER PKG INSTRUCT
     Route: 048
     Dates: start: 20071101, end: 20080301
  2. ALL OTHER THERAPEUTIC PRODUCTS [Suspect]
     Indication: DRUG USE FOR UNKNOWN INDICATION
     Dosage: UNKNOWN QUANTITIES, 4-5X/VISIT
     Dates: end: 20080301

REACTIONS (13)
  - DISTURBANCE IN ATTENTION [None]
  - EMOTIONAL DISORDER [None]
  - FEAR [None]
  - FEELING OF DESPAIR [None]
  - HOMELESS [None]
  - IMPRISONMENT [None]
  - INSOMNIA [None]
  - NERVOUSNESS [None]
  - RASH [None]
  - RASH PRURITIC [None]
  - SELF INJURIOUS BEHAVIOUR [None]
  - SOCIAL AVOIDANT BEHAVIOUR [None]
  - TINEA INFECTION [None]
